FAERS Safety Report 15309414 (Version 1)
Quarter: 2018Q3

REPORT INFORMATION
  Report Type: Spontaneous
  Country: US (occurrence: US)
  Receive Date: 20180811
  Receipt Date: 20180811
  Transmission Date: 20181010
  Serious: Yes (Hospitalization)
  Sender: FDA-Public Use
  Company Number: None

PATIENT
  Age: 46 Year
  Sex: Female
  Weight: 71.7 kg

DRUGS (1)
  1. ASPIRIN. [Suspect]
     Active Substance: ASPIRIN
     Dates: end: 20180805

REACTIONS (4)
  - Cerebellar tumour [None]
  - Dysarthria [None]
  - Headache [None]
  - Intracranial mass [None]

NARRATIVE: CASE EVENT DATE: 20180805
